FAERS Safety Report 21264180 (Version 1)
Quarter: 2022Q3

REPORT INFORMATION
  Report Type: Spontaneous
  Country: US (occurrence: US)
  Receive Date: 20220829
  Receipt Date: 20220829
  Transmission Date: 20221027
  Serious: No
  Sender: FDA-Public Use
  Company Number: US-AUROBINDO-AUR-APL-2022-024491

PATIENT
  Age: 74 Year
  Sex: Female
  Weight: 78 kg

DRUGS (4)
  1. AZELASTINE HYDROCHLORIDE [Suspect]
     Active Substance: AZELASTINE HYDROCHLORIDE
     Indication: Nasal disorder
     Dosage: 1 DOSAGE FORM, TWO TIMES A DAY
     Route: 045
     Dates: start: 20220611, end: 20220626
  2. METOPROLOL [Concomitant]
     Active Substance: METOPROLOL
     Indication: Myocardial injury
     Dosage: UNK
     Route: 065
  3. ENTRESTO [Concomitant]
     Active Substance: SACUBITRIL\VALSARTAN
     Indication: Product used for unknown indication
     Dosage: UNK
     Route: 065
  4. ATORVASTATIN [Concomitant]
     Active Substance: ATORVASTATIN
     Indication: Product used for unknown indication
     Dosage: UNK
     Route: 065

REACTIONS (2)
  - Drug ineffective [Unknown]
  - Product delivery mechanism issue [Unknown]
